FAERS Safety Report 16470050 (Version 1)
Quarter: 2019Q2

REPORT INFORMATION
  Report Type: Spontaneous
  Country: US (occurrence: US)
  Receive Date: 20190514
  Receipt Date: 20190514
  Transmission Date: 20190711
  Serious: Yes (Hospitalization)
  Sender: FDA-Public Use
  Company Number: None

PATIENT
  Age: 88 Year
  Sex: Female

DRUGS (6)
  1. LOSARTAN. [Concomitant]
     Active Substance: LOSARTAN
  2. TORSEMIDE. [Concomitant]
     Active Substance: TORSEMIDE
  3. TOVIAZ [Concomitant]
     Active Substance: FESOTERODINE FUMARATE
  4. MYRBETROQ [Concomitant]
  5. DULOXETINE. [Concomitant]
     Active Substance: DULOXETINE
  6. SILDENAFIL 20 MG [Suspect]
     Active Substance: SILDENAFIL
     Indication: PULMONARY ARTERIAL HYPERTENSION
     Route: 048
     Dates: start: 20180503

REACTIONS (1)
  - Dyspnoea [None]

NARRATIVE: CASE EVENT DATE: 201904
